FAERS Safety Report 8275844-9 (Version None)
Quarter: 2012Q2

REPORT INFORMATION
  Report Type: 
  Country: None (occurrence: None)
  Receive Date: 20120412
  Receipt Date: 20120409
  Transmission Date: 20120825
  Serious: Yes (Hospitalization)
  Sender: FDA-Public Use
  Company Number: CA-TEVA-332610USA

PATIENT
  Age: 58 Year
  Sex: Male

DRUGS (5)
  1. RAMIPRIL [Suspect]
     Dosage: 10 MILLIGRAM;
     Route: 048
  2. RAMIPRIL [Suspect]
     Dosage: 54 MILLIGRAM;
     Route: 048
  3. ATORVASTATIN CALCIUM [Concomitant]
  4. BISOPROLOL FUMARATE [Concomitant]
  5. CLOPIDOGREL [Concomitant]

REACTIONS (2)
  - DROOLING [None]
  - SWOLLEN TONGUE [None]
